FAERS Safety Report 12538084 (Version 3)
Quarter: 2016Q4

REPORT INFORMATION
  Report Type: Report from Study
  Country: JP (occurrence: JP)
  Receive Date: 20160707
  Receipt Date: 20161109
  Transmission Date: 20170207
  Serious: Yes (Death, Hospitalization, Other)
  Sender: FDA-Public Use
  Company Number: JP-SUCAMPO PHARMACEUTICALS, INC.-SPI201600644

PATIENT
  Age: 81 Year
  Sex: Male
  Weight: 57 kg

DRUGS (14)
  1. FP [Concomitant]
     Active Substance: SELEGILINE HYDROCHLORIDE
     Dosage: UNK
     Route: 048
     Dates: start: 20151208, end: 20160604
  2. MIRAPEX [Concomitant]
     Active Substance: PRAMIPEXOLE DIHYDROCHLORIDE
     Dosage: UNK
     Route: 048
     Dates: start: 20160511, end: 20160604
  3. TRERIEF [Concomitant]
     Active Substance: ZONISAMIDE
     Dosage: UNK
     Route: 048
     Dates: start: 20160406, end: 20160510
  4. RENIVACE [Concomitant]
     Active Substance: ENALAPRIL
     Dosage: UNK
     Route: 048
  5. CRESTOR [Concomitant]
     Active Substance: ROSUVASTATIN CALCIUM
     Dosage: UNK
     Route: 048
  6. NOURIAST [Concomitant]
     Active Substance: ISTRADEFYLLINE
     Dosage: UNK
     Route: 048
     Dates: end: 20160604
  7. PRAZAXA [Concomitant]
     Active Substance: DABIGATRAN ETEXILATE MESYLATE
     Dosage: UNK
     Route: 048
  8. LASIX [Concomitant]
     Active Substance: FUROSEMIDE
     Dosage: UNK
     Route: 048
  9. UNKNOWN [Concomitant]
     Active Substance: UNSPECIFIED INGREDIENT
     Indication: PROPHYLAXIS
     Dosage: UNK
     Route: 048
  10. STALEVO [Concomitant]
     Active Substance: CARBIDOPA\ENTACAPONE\LEVODOPA
     Dosage: UNK
     Route: 048
     Dates: start: 20160302, end: 20160604
  11. ALDACTONE A [Concomitant]
     Active Substance: SPIRONOLACTONE
     Dosage: UNK
     Route: 048
  12. AMITIZA [Suspect]
     Active Substance: LUBIPROSTONE
     Indication: CONSTIPATION
     Dosage: 24 MCG, BID
     Route: 048
     Dates: start: 20151111, end: 20160604
  13. MENESIT [Concomitant]
     Active Substance: CARBIDOPA\LEVODOPA
     Dosage: UNK
     Route: 048
     Dates: end: 20160301
  14. UNKNOWN [Concomitant]
     Active Substance: UNSPECIFIED INGREDIENT
     Dosage: UNK
     Route: 048

REACTIONS (3)
  - Myocardial ischaemia [Fatal]
  - Cardiac arrest [Unknown]
  - Faecaloma [Unknown]

NARRATIVE: CASE EVENT DATE: 20160604
